FAERS Safety Report 7572329-X (Version None)
Quarter: 2011Q2

REPORT INFORMATION
  Report Type: 
  Country: None (occurrence: None)
  Receive Date: 20110624
  Receipt Date: 20110617
  Transmission Date: 20111010
  Serious: Yes (Life-Threatening, Hospitalization, Other)
  Sender: FDA-Public Use
  Company Number: PHHY2011US30206

PATIENT
  Age: 53 Year
  Sex: Female

DRUGS (24)
  1. RECLAST [Suspect]
     Dosage: 5 MG, UNK
     Route: 042
     Dates: start: 20101220
  2. ATENOLOL [Concomitant]
  3. XANAX [Concomitant]
  4. LYRICA [Concomitant]
  5. BENZONATATE [Concomitant]
     Dosage: 200 MG, UNK
  6. ATROVENT [Concomitant]
  7. PROTONIX [Concomitant]
     Dosage: 40 MG, UNK
  8. TOPAMAX [Concomitant]
  9. TOPAMAX [Concomitant]
  10. LEVAQUIN [Concomitant]
  11. ANTIBIOTICS [Concomitant]
  12. OXYGEN [Concomitant]
  13. STEROIDS NOS [Concomitant]
  14. PREDNISONE [Concomitant]
     Dosage: 5 MG
     Dates: start: 20110129
  15. ALPRAZOLAM [Concomitant]
     Dosage: 1 MG, UNK
  16. TENORMIN [Concomitant]
     Dosage: 50 MG, UNK
  17. PHENERGAN HCL [Concomitant]
  18. LORTAB [Concomitant]
     Dosage: 500 MG, UNK
  19. ASPIRIN [Concomitant]
     Dosage: 81 MG, UNK
  20. TUSSIONEX [Concomitant]
     Dosage: 5 ML, UNK
  21. HYDROCODONE [Concomitant]
  22. MIRAPEX [Concomitant]
  23. SOMA [Concomitant]
     Dosage: 350 MG, UNK
  24. XOPENEX [Concomitant]

REACTIONS (39)
  - HEPATIC FUNCTION ABNORMAL [None]
  - HYPOCALCAEMIA [None]
  - SINUS TACHYCARDIA [None]
  - ALANINE AMINOTRANSFERASE INCREASED [None]
  - ANAEMIA [None]
  - IRON BINDING CAPACITY TOTAL DECREASED [None]
  - BLOOD UREA INCREASED [None]
  - FEELING ABNORMAL [None]
  - DISABILITY [None]
  - BLOOD GLUCOSE INCREASED [None]
  - LUNG INFILTRATION [None]
  - ASPERGILLUS TEST POSITIVE [None]
  - CHILLS [None]
  - ACUTE RESPIRATORY FAILURE [None]
  - INTERSTITIAL LUNG DISEASE [None]
  - HEPATITIS B ANTIBODY [None]
  - DYSPNOEA [None]
  - BLOOD LACTATE DEHYDROGENASE INCREASED [None]
  - BLOOD FIBRINOGEN DECREASED [None]
  - COUGH [None]
  - PNEUMONIA VIRAL [None]
  - RENAL FAILURE ACUTE [None]
  - PULMONARY OEDEMA [None]
  - PYREXIA [None]
  - CHRONIC OBSTRUCTIVE PULMONARY DISEASE [None]
  - VITAMIN B12 DEFICIENCY [None]
  - HYPOXIA [None]
  - BLOOD THYROID STIMULATING HORMONE DECREASED [None]
  - RED BLOOD CELL COUNT DECREASED [None]
  - BLOOD CALCIUM DECREASED [None]
  - PNEUMONIA [None]
  - DISBACTERIOSIS [None]
  - ASPARTATE AMINOTRANSFERASE INCREASED [None]
  - PROTEIN TOTAL DECREASED [None]
  - DISSEMINATED INTRAVASCULAR COAGULATION [None]
  - THROMBOCYTOPENIA [None]
  - TOBACCO ABUSE [None]
  - PLATELET COUNT DECREASED [None]
  - BLOOD CREATININE INCREASED [None]
